FAERS Safety Report 4977127-9 (Version None)
Quarter: 2006Q1

REPORT INFORMATION
  Report Type: 
  Country: None (occurrence: None)
  Receive Date: 20060223
  Receipt Date: 20050706
  Transmission Date: 20060701
  Serious: Yes (Hospitalization, Other)
  Sender: FDA-Public Use
  Company Number: HQWYE101111JUL05

PATIENT
  Age: 52 Year
  Sex: Female
  Weight: 54.48 kg

DRUGS (7)
  1. EFFEXOR [Suspect]
     Indication: DEPRESSION
     Dosage: 37.5 MG 1X PER 1 DAY, ORAL - SEE IMAGE
     Route: 048
     Dates: start: 20031001, end: 20041001
  2. EFFEXOR [Suspect]
     Indication: NEURALGIA
     Dosage: 37.5 MG 1X PER 1 DAY, ORAL - SEE IMAGE
     Route: 048
     Dates: start: 20031001, end: 20041001
  3. EFFEXOR [Suspect]
     Indication: DEPRESSION
     Dosage: 37.5 MG 1X PER 1 DAY, ORAL - SEE IMAGE
     Route: 048
     Dates: start: 20041001, end: 20041101
  4. EFFEXOR [Suspect]
     Indication: NEURALGIA
     Dosage: 37.5 MG 1X PER 1 DAY, ORAL - SEE IMAGE
     Route: 048
     Dates: start: 20041001, end: 20041101
  5. AMBIEN [Concomitant]
  6. MAXALT [Concomitant]
  7. LEXAPRO [Concomitant]

REACTIONS (1)
  - GRAND MAL CONVULSION [None]
